FAERS Safety Report 9088383 (Version 2)
Quarter: 2013Q2

REPORT INFORMATION
  Report Type: Report from Study
  Country: US (occurrence: US)
  Receive Date: 20130201
  Receipt Date: 20130503
  Transmission Date: 20140414
  Serious: Yes (Hospitalization)
  Sender: FDA-Public Use
  Company Number: US-US-EMD SERONO, INC.-7190326

PATIENT
  Age: 45 Year
  Sex: Male
  Weight: 136 kg

DRUGS (1)
  1. REBIF [Suspect]
     Indication: MULTIPLE SCLEROSIS
     Route: 058
     Dates: start: 20100427

REACTIONS (2)
  - Kidney infection [Recovering/Resolving]
  - Influenza like illness [Unknown]
